FAERS Safety Report 4587888-9 (Version None)
Quarter: 2005Q1

REPORT INFORMATION
  Report Type: 
  Country: None (occurrence: None)
  Receive Date: 20050125
  Receipt Date: 20041108
  Transmission Date: 20050727
  Serious: No
  Sender: FDA-Public Use
  Company Number: USA040978304

PATIENT
  Age: 72 Year
  Sex: Female

DRUGS (4)
  1. FORTEO [Suspect]
     Indication: OSTEOPOROSIS
     Dates: end: 20040101
  2. LESCOL [Concomitant]
  3. CALCIUM GLUCONATE [Concomitant]
  4. DIAZIDE (GLICLAZIDE) [Concomitant]

REACTIONS (1)
  - BLOOD CALCIUM INCREASED [None]
